FAERS Safety Report 26190512 (Version 1)
Quarter: 2025Q4

REPORT INFORMATION
  Report Type: Report from Study
  Country: US (occurrence: US)
  Receive Date: 20251223
  Receipt Date: 20251223
  Transmission Date: 20260118
  Serious: Yes (Other)
  Sender: ROCHE
  Company Number: US-ROCHE-3576753

PATIENT
  Age: 67 Year
  Sex: Male

DRUGS (9)
  1. OCREVUS [Suspect]
     Active Substance: OCRELIZUMAB
     Indication: Primary progressive multiple sclerosis
     Route: 042
     Dates: start: 2022
  2. OCREVUS [Suspect]
     Active Substance: OCRELIZUMAB
     Dosage: 600MG IV PIGGYBACK INFUSION EVERY 168 DAYS.?OCRELIZUMAB 600MG IVPB OVER 4 HOURS. INFUSION TO START AT 30ML/HR. INCREASE BY 30ML/HR. EVERY 30MINUTES FOR A MAXIMUM OF 180ML/HR. MONITOR FOR 1 HOUR AFTER COMPLETION OF OCRELIZUMAB. IV TO REMAIN AT 100CC/HR. IF NO REACTION AND ADMINISTRATION GOES SMOOTHLY
     Route: 042
  3. BENADRYL [Concomitant]
     Active Substance: DIPHENHYDRAMINE HYDROCHLORIDE
     Dosage: 50MG IVP
     Route: 042
  4. IBUPROFEN [Concomitant]
     Active Substance: IBUPROFEN
     Route: 048
  5. METHYLPREDNISOLONE [Concomitant]
     Active Substance: METHYLPREDNISOLONE
     Dosage: 100MG IVP
     Route: 042
  6. BACLOFEN [Concomitant]
     Active Substance: BACLOFEN
  7. ZANAFLEX [Concomitant]
     Active Substance: TIZANIDINE HYDROCHLORIDE
  8. FLUTICASONE [Concomitant]
     Active Substance: FLUTICASONE
  9. TIZANIDINE [Concomitant]
     Active Substance: TIZANIDINE

REACTIONS (3)
  - Headache [Unknown]
  - Hallucination, visual [Unknown]
  - Hallucination, auditory [Unknown]
